FAERS Safety Report 23325153 (Version 2)
Quarter: 2024Q1

REPORT INFORMATION
  Report Type: Spontaneous
  Country: US (occurrence: US)
  Receive Date: 20231221
  Receipt Date: 20240124
  Transmission Date: 20240410
  Serious: No
  Sender: FDA-Public Use
  Company Number: US-BRISTOL-MYERS SQUIBB COMPANY-2023-184329

PATIENT
  Age: 72 Year
  Sex: Male
  Weight: 86.4 kg

DRUGS (1)
  1. REVLIMID [Suspect]
     Active Substance: LENALIDOMIDE
     Indication: Plasma cell myeloma
     Dosage: FREQUENCY: 7 DAYS ON, 7 DAYS OFF
     Route: 048
     Dates: start: 202108

REACTIONS (2)
  - Diarrhoea [Unknown]
  - Off label use [Unknown]
